FAERS Safety Report 9206487 (Version 1)
Quarter: 2013Q2

REPORT INFORMATION
  Report Type: Spontaneous
  Country: FR (occurrence: None)
  Receive Date: 20130401
  Receipt Date: 20130401
  Transmission Date: 20140414
  Serious: Yes (Other)
  Sender: FDA-Public Use
  Company Number: 2013000078

PATIENT
  Age: 57 Year
  Sex: Male
  Weight: 60 kg

DRUGS (9)
  1. ACEON [Suspect]
     Indication: HYPERTENSION
     Route: 048
     Dates: start: 20070309, end: 20080725
  2. PRAVASTATINE (PRAVASTATIN SODIUM) [Concomitant]
     Indication: HYPERCHOLESTEROLAEMIA
     Route: 048
     Dates: start: 20080311, end: 20080725
  3. SECTRAL (ACEBUTOLOL HYDROCHLORIDE) [Concomitant]
  4. PLAVIX (CLOPIDROGEL) [Concomitant]
  5. KARDEGIC (ACETYLSALICYLATE LYSINE) [Concomitant]
  6. VASTEN (PRAVASTATIN SODIUM) [Concomitant]
  7. PRAVADUAL (ACETYLISALICYCLIC ACID, PRAVASTATIN SODIUM) [Concomitant]
  8. AMIOR (AMLODIPINE BESILATE) [Concomitant]
  9. MOPRAL (OMEPRAZOLE) [Concomitant]

REACTIONS (4)
  - Pancreatitis [None]
  - Blindness [None]
  - Deafness unilateral [None]
  - Weight decreased [None]
